FAERS Safety Report 7168071 (Version 3)
Quarter: 2013Q4

REPORT INFORMATION
  Report Type: Spontaneous
  Country: US (occurrence: None)
  Receive Date: 20091026
  Receipt Date: 20131206
  Transmission Date: 20140711
  Serious: Yes (Death, Hospitalization)
  Sender: FDA-Public Use
  Company Number: US-000770

PATIENT
  Sex: Female

DRUGS (17)
  1. GATTEX [Suspect]
     Indication: SHORT-BOWEL SYNDROME
     Route: 058
     Dates: start: 20130813, end: 20130822
  2. SOLUTION FOR PARENTERAL NUTRITION [Concomitant]
  3. DILAUDID [Concomitant]
  4. FIORICET [Concomitant]
  5. ROXICET [Concomitant]
  6. SKELAXIN /00611501/ [Concomitant]
  7. MYLANTA /00036701/ [Concomitant]
  8. BENADRYL /00000402/ [Concomitant]
  9. FLONASE [Concomitant]
  10. LEVEMIR [Concomitant]
  11. NOVOLOG [Concomitant]
  12. MILK OF MAGNESIA [Concomitant]
  13. ZOFRAN /00955301/ [Concomitant]
  14. SYNTHROID [Concomitant]
  15. PYRIDIUM [Concomitant]
  16. LOMOTIL /00384302/ [Concomitant]
  17. HYTOSCYAMINE [Concomitant]

REACTIONS (11)
  - Nausea [None]
  - Insomnia [None]
  - Blister [None]
  - Skin exfoliation [None]
  - Swelling [None]
  - Hypersensitivity [None]
  - Overdose [None]
  - Influenza like illness [None]
  - Weight increased [None]
  - Upper respiratory tract infection [None]
  - Anaemia of chronic disease [None]
